FAERS Safety Report 5536689-3 (Version None)
Quarter: 2007Q4

REPORT INFORMATION
  Report Type: 
  Country: None (occurrence: None)
  Receive Date: 20071206
  Receipt Date: 20070629
  Transmission Date: 20080405
  Serious: Yes (Hospitalization)
  Sender: FDA-Public Use
  Company Number: US-AMGEN-US231974

PATIENT
  Sex: Female

DRUGS (1)
  1. ENBREL [Suspect]
     Indication: RHEUMATOID ARTHRITIS
     Route: 058
     Dates: start: 20040301

REACTIONS (9)
  - ARTHRALGIA [None]
  - CELLULITIS [None]
  - INGROWING NAIL [None]
  - INJECTION SITE BRUISING [None]
  - INJECTION SITE PAIN [None]
  - JOINT SWELLING [None]
  - NEUROPATHY PERIPHERAL [None]
  - NODULE [None]
  - PNEUMONIA [None]
